FAERS Safety Report 7058553-3 (Version None)
Quarter: 2010Q4

REPORT INFORMATION
  Report Type: 
  Country: None (occurrence: None)
  Receive Date: 20101022
  Receipt Date: 20101015
  Transmission Date: 20110411
  Serious: Yes (Hospitalization)
  Sender: FDA-Public Use
  Company Number: A0810430A

PATIENT
  Age: 63 Year
  Sex: Female
  Weight: 118.2 kg

DRUGS (6)
  1. AVANDIA [Suspect]
     Dosage: 8MG PER DAY
     Route: 048
     Dates: start: 20001001, end: 20040901
  2. ASPIRIN [Concomitant]
  3. NITROGLYCERIN [Concomitant]
  4. CARDIZEM [Concomitant]
  5. PLAVIX [Concomitant]
  6. K-DUR [Concomitant]

REACTIONS (4)
  - CARDIAC FAILURE CONGESTIVE [None]
  - CORONARY ARTERY DISEASE [None]
  - FRACTURE [None]
  - MYOCARDIAL INFARCTION [None]
